FAERS Safety Report 7798502-3 (Version None)
Quarter: 2011Q4

REPORT INFORMATION
  Report Type: 
  Country: None (occurrence: None)
  Receive Date: 20111005
  Receipt Date: 20110928
  Transmission Date: 20120403
  Serious: Yes (Hospitalization)
  Sender: FDA-Public Use
  Company Number: US-B.I. PHARMACEUTICALS,INC./RIDGEFIELD-2011-BP-16845BP

PATIENT
  Age: 84 Year
  Sex: Male
  Weight: 87.3 kg

DRUGS (11)
  1. METOPROLOL TARTRATE [Concomitant]
     Dosage: 100 MG
     Dates: start: 20110629
  2. FUROSEMIDE [Concomitant]
     Dosage: 40 MG
     Dates: start: 20110629
  3. TERAZOSIN HCL [Concomitant]
     Indication: HYPERTENSION
     Dosage: 5 MG
     Route: 048
     Dates: start: 20051201
  4. BETHANECHOL [Concomitant]
     Dosage: 50 MG
     Route: 048
     Dates: start: 20070828
  5. LISINOPRIL [Concomitant]
     Indication: HYPERTENSION
     Dosage: 10 MG
     Route: 048
     Dates: start: 20040417
  6. SIMVASTATIN [Concomitant]
     Indication: HYPERLIPIDAEMIA
     Dosage: 10 MG
     Route: 048
     Dates: start: 20020924, end: 20110623
  7. PRAVASTATIN [Concomitant]
     Indication: HYPERLIPIDAEMIA
     Dosage: 40 MG
     Route: 048
     Dates: start: 20110629
  8. ASPIRIN [Concomitant]
     Dosage: 81 MG
     Dates: start: 20010801
  9. PRADAXA [Suspect]
     Indication: ATRIAL FLUTTER
     Dosage: 300 MG
     Route: 048
     Dates: start: 20110411
  10. PRADAXA [Suspect]
     Indication: ATRIAL FIBRILLATION
  11. AMIODARONE HCL [Concomitant]
     Dosage: 200 MG
     Dates: start: 20110629

REACTIONS (2)
  - CARDIAC FAILURE CONGESTIVE [None]
  - THROMBOCYTOPENIA [None]
